FAERS Safety Report 8244725-9 (Version None)
Quarter: 2012Q1

REPORT INFORMATION
  Report Type: 
  Country: None (occurrence: None)
  Receive Date: 20120329
  Receipt Date: 20110225
  Transmission Date: 20120608
  Serious: No
  Sender: FDA-Public Use
  Company Number: US-MYLANLABS-2011S1003843

PATIENT
  Age: 48 Year
  Sex: Female

DRUGS (3)
  1. FENTANYL-100 [Suspect]
     Indication: BACK PAIN
     Dosage: Q3D
     Route: 062
     Dates: end: 20110219
  2. PAXIL [Concomitant]
     Indication: DEPRESSION
     Route: 048
  3. INDOMETHACIN [Concomitant]
     Indication: PAIN
     Route: 048

REACTIONS (1)
  - MIGRAINE [None]
